FAERS Safety Report 8446856-7 (Version None)
Quarter: 2012Q2

REPORT INFORMATION
  Report Type: 
  Country: None (occurrence: None)
  Receive Date: 20120612
  Receipt Date: 20120612
  Transmission Date: 20120825
  Serious: Yes (Other)
  Sender: FDA-Public Use
  Company Number: None

PATIENT
  Sex: Female
  Weight: 77.7 kg

DRUGS (1)
  1. PLAQUENIL [Suspect]
     Indication: SYSTEMIC LUPUS ERYTHEMATOSUS
     Dosage: PLAQUENIL 200MG ADMINISTER 1 1/2 TABL BY MOUTH
     Route: 048
     Dates: start: 20120606

REACTIONS (2)
  - PRURITUS GENERALISED [None]
  - FLATULENCE [None]
